FAERS Safety Report 8024374-8 (Version None)
Quarter: 2012Q1

REPORT INFORMATION
  Report Type: 
  Country: None (occurrence: None)
  Receive Date: 20120105
  Receipt Date: 20120105
  Transmission Date: 20120608
  Serious: Yes (Other)
  Sender: FDA-Public Use
  Company Number: None

PATIENT
  Age: 48 Year
  Sex: Female
  Weight: 81.646 kg

DRUGS (1)
  1. CYMBALTA [Suspect]

REACTIONS (8)
  - DRUG DOSE OMISSION [None]
  - PARAESTHESIA [None]
  - ANGER [None]
  - DIZZINESS [None]
  - FATIGUE [None]
  - CRYING [None]
  - CONVERSION DISORDER [None]
  - DRUG WITHDRAWAL SYNDROME [None]
